FAERS Safety Report 8969464 (Version 1)
Quarter: 2012Q4

REPORT INFORMATION
  Report Type: Spontaneous
  Country: US (occurrence: None)
  Receive Date: 20121210
  Receipt Date: 20121210
  Transmission Date: 20130627
  Serious: Yes (Other)
  Sender: FDA-Public Use
  Company Number: US_2012-11718

PATIENT
  Age: 37 Year
  Sex: Male

DRUGS (3)
  1. TOLVAPTAN [Suspect]
     Indication: POLYCYSTIC KIDNEY, AUTOSOMAL DOMINANT
     Route: 048
     Dates: start: 20121006, end: 20121112
  2. LISINOPRIL (LISINOPRIL) [Concomitant]
  3. TYLENOL (PARACETAMOL) [Concomitant]

REACTIONS (2)
  - Alanine aminotransferase increased [None]
  - Aspartate aminotransferase increased [None]
